FAERS Safety Report 23210077 (Version 1)
Quarter: 2023Q4

REPORT INFORMATION
  Report Type: Spontaneous
  Country: US (occurrence: US)
  Receive Date: 20231121
  Receipt Date: 20231121
  Transmission Date: 20240109
  Serious: No
  Sender: FDA-Public Use
  Company Number: US-TAKEDA-2023TUS112326

PATIENT
  Age: 86 Year
  Sex: Male

DRUGS (12)
  1. GATTEX [Suspect]
     Active Substance: TEDUGLUTIDE\WATER
     Indication: Crohn^s disease
     Dosage: UNK
     Route: 065
  2. GATTEX [Suspect]
     Active Substance: TEDUGLUTIDE\WATER
     Indication: Crohn^s disease
     Dosage: UNK
     Route: 065
  3. GATTEX [Suspect]
     Active Substance: TEDUGLUTIDE\WATER
     Indication: Crohn^s disease
     Dosage: UNK
     Route: 065
  4. GATTEX [Suspect]
     Active Substance: TEDUGLUTIDE\WATER
     Indication: Crohn^s disease
     Dosage: UNK
     Route: 065
  5. GATTEX [Suspect]
     Active Substance: TEDUGLUTIDE\WATER
     Indication: Short-bowel syndrome
  6. GATTEX [Suspect]
     Active Substance: TEDUGLUTIDE\WATER
     Indication: Short-bowel syndrome
  7. GATTEX [Suspect]
     Active Substance: TEDUGLUTIDE\WATER
     Indication: Short-bowel syndrome
  8. GATTEX [Suspect]
     Active Substance: TEDUGLUTIDE\WATER
     Indication: Short-bowel syndrome
  9. GATTEX [Suspect]
     Active Substance: TEDUGLUTIDE\WATER
     Indication: Gastrointestinal stoma complication
  10. GATTEX [Suspect]
     Active Substance: TEDUGLUTIDE\WATER
     Indication: Gastrointestinal stoma complication
  11. GATTEX [Suspect]
     Active Substance: TEDUGLUTIDE\WATER
     Indication: Gastrointestinal stoma complication
  12. GATTEX [Suspect]
     Active Substance: TEDUGLUTIDE\WATER
     Indication: Gastrointestinal stoma complication

REACTIONS (1)
  - Drug ineffective [Unknown]
